FAERS Safety Report 20470732 (Version 4)
Quarter: 2022Q3

REPORT INFORMATION
  Report Type: Report from Study
  Country: DE (occurrence: DE)
  Receive Date: 20220214
  Receipt Date: 20220816
  Transmission Date: 20221026
  Serious: Yes (Death, Other)
  Sender: FDA-Public Use
  Company Number: DE-NOVARTISPH-NVSC2022DE032834

PATIENT
  Sex: Female
  Weight: 77.8 kg

DRUGS (4)
  1. KISQALI [Suspect]
     Active Substance: RIBOCICLIB
     Indication: Hormone receptor positive HER2 negative breast cancer
     Dosage: 600 MG (REGIMEN21 DAYS INTAKE, 7 DAYS PAUSE)
     Route: 048
     Dates: start: 20201201, end: 20201215
  2. KISQALI [Suspect]
     Active Substance: RIBOCICLIB
     Dosage: 400 MG (REGIMEN21 DAYS INTAKE, 7 DAYS PAUSE)
     Route: 048
     Dates: start: 20210105, end: 20210201
  3. LETROZOLE [Suspect]
     Active Substance: LETROZOLE
     Indication: Hormone receptor positive HER2 negative breast cancer
     Dosage: 2.5 MG, QD
     Route: 048
     Dates: start: 20201201, end: 20210209
  4. FUROSEMIDE [Concomitant]
     Active Substance: FUROSEMIDE
     Indication: Product used for unknown indication
     Dosage: UNK
     Route: 065

REACTIONS (9)
  - Hepatic failure [Fatal]
  - Hepatic cirrhosis [Fatal]
  - Metastases to liver [Fatal]
  - Ascites [Fatal]
  - Femur fracture [Recovering/Resolving]
  - Varicella [Unknown]
  - Arthritis [Not Recovered/Not Resolved]
  - Abdominal pain [Unknown]
  - Device failure [Not Recovered/Not Resolved]

NARRATIVE: CASE EVENT DATE: 20211124
